FAERS Safety Report 17099270 (Version 1)
Quarter: 2019Q4

REPORT INFORMATION
  Report Type: Spontaneous
  Country: JP (occurrence: JP)
  Receive Date: 20191202
  Receipt Date: 20191202
  Transmission Date: 20200122
  Serious: Yes (Other)
  Sender: FDA-Public Use
  Company Number: JP-PFIZER INC-2019514319

PATIENT
  Age: 79 Year
  Sex: Female
  Weight: 36.5 kg

DRUGS (2)
  1. LINEZOLID. [Suspect]
     Active Substance: LINEZOLID
     Dosage: 600 MG, DAILY
  2. LINEZOLID. [Suspect]
     Active Substance: LINEZOLID
     Indication: STAPHYLOCOCCAL INFECTION
     Dosage: 1200 MG, DAILY

REACTIONS (4)
  - Platelet count decreased [Unknown]
  - Hallucination [Recovering/Resolving]
  - Agitation [Recovering/Resolving]
  - Neurological symptom [Recovering/Resolving]
